FAERS Safety Report 18393848 (Version 1)
Quarter: 2020Q4

REPORT INFORMATION
  Report Type: Spontaneous
  Country: JP (occurrence: JP)
  Receive Date: 20201016
  Receipt Date: 20201016
  Transmission Date: 20210114
  Serious: Yes (Other)
  Sender: FDA-Public Use
  Company Number: JP-BAYER-2020-217310

PATIENT
  Sex: Female

DRUGS (1)
  1. MIRENA [Suspect]
     Active Substance: LEVONORGESTREL
     Dosage: 20?G PER DAY?CONTINUALLY
     Route: 015
     Dates: start: 2015

REACTIONS (2)
  - Device issue [None]
  - Cervix carcinoma [None]

NARRATIVE: CASE EVENT DATE: 2016
